FAERS Safety Report 9765905 (Version 1)
Quarter: 2013Q4

REPORT INFORMATION
  Report Type: Spontaneous
  Country: US (occurrence: US)
  Receive Date: 20131217
  Receipt Date: 20131217
  Transmission Date: 20140711
  Serious: No
  Sender: FDA-Public Use
  Company Number: US-BIOGENIDEC-2013BI111313

PATIENT
  Age: 43 Year
  Sex: Female
  Weight: 97 kg

DRUGS (7)
  1. TECFIDERA [Suspect]
     Indication: PRODUCT USED FOR UNKNOWN INDICATION
     Route: 048
  2. SIMVASTATIN [Concomitant]
  3. LEVOTHYROID [Concomitant]
  4. CARBAMAZEPINE [Concomitant]
  5. VIT D [Concomitant]
  6. CELEXA [Concomitant]
  7. GABAPENTIN [Concomitant]

REACTIONS (1)
  - Lower respiratory tract infection [Not Recovered/Not Resolved]
